FAERS Safety Report 11191640 (Version 1)
Quarter: 2015Q2

REPORT INFORMATION
  Report Type: Spontaneous
  Country: US (occurrence: None)
  Receive Date: 20150615
  Receipt Date: 20150615
  Transmission Date: 20150821
  Serious: Yes (Death, Hospitalization)
  Sender: FDA-Public Use
  Company Number: None

PATIENT
  Age: 63 Year
  Sex: Male
  Weight: 79.8 kg

DRUGS (2)
  1. DAUNORUBICIN [Suspect]
     Active Substance: DAUNORUBICIN
     Dates: end: 20131214
  2. CYTARABINE. [Suspect]
     Active Substance: CYTARABINE
     Dates: end: 20131218

REACTIONS (5)
  - Sepsis [None]
  - Renal failure [None]
  - Bronchopulmonary aspergillosis [None]
  - Subdural haematoma [None]
  - Respiratory distress [None]

NARRATIVE: CASE EVENT DATE: 20131218
